FAERS Safety Report 19182404 (Version 3)
Quarter: 2021Q3

REPORT INFORMATION
  Report Type: Report from Study
  Country: US (occurrence: US)
  Receive Date: 20210427
  Receipt Date: 20210723
  Transmission Date: 20211014
  Serious: No
  Sender: FDA-Public Use
  Company Number: US-ACADIA PHARMACEUTICALS INC.-ACA-2021-PIM-001269

PATIENT
  Age: 80 Year
  Sex: Male
  Weight: 84 kg

DRUGS (13)
  1. NUPLAZID [Suspect]
     Active Substance: PIMAVANSERIN TARTRATE
     Indication: HALLUCINATION
  2. CARBIDOPA/LEVODOPA [Concomitant]
     Active Substance: CARBIDOPA\LEVODOPA
  3. FLOMAX [Concomitant]
     Active Substance: TAMSULOSIN HYDROCHLORIDE
  4. LEVOTHYROXINE. [Concomitant]
     Active Substance: LEVOTHYROXINE
  5. PROZAC [Concomitant]
     Active Substance: FLUOXETINE HYDROCHLORIDE
  6. SEROQUEL [Concomitant]
     Active Substance: QUETIAPINE FUMARATE
  7. DUTASTERIDE. [Concomitant]
     Active Substance: DUTASTERIDE
  8. LISINOPRIL. [Concomitant]
     Active Substance: LISINOPRIL
  9. NUPLAZID [Suspect]
     Active Substance: PIMAVANSERIN TARTRATE
     Indication: PARKINSON^S DISEASE PSYCHOSIS
     Dosage: 34 MILLIGRAM, QD
     Route: 065
     Dates: start: 20210330, end: 20210330
  10. LORAZEPAM. [Concomitant]
     Active Substance: LORAZEPAM
  11. NUPLAZID [Suspect]
     Active Substance: PIMAVANSERIN TARTRATE
     Indication: DELUSION
  12. DONEPEZIL. [Concomitant]
     Active Substance: DONEPEZIL
  13. PROVIGIL [Concomitant]
     Active Substance: MODAFINIL

REACTIONS (10)
  - Somnolence [Recovering/Resolving]
  - Confusional state [Unknown]
  - Fatigue [Unknown]
  - Hallucination [Unknown]
  - Gait inability [Recovering/Resolving]
  - Gait disturbance [Recovering/Resolving]
  - Fall [Unknown]
  - Delusion [Unknown]
  - Urinary tract disorder [Unknown]
  - Agitation [Unknown]

NARRATIVE: CASE EVENT DATE: 20210330
